FAERS Safety Report 17636491 (Version 1)
Quarter: 2020Q2

REPORT INFORMATION
  Report Type: Spontaneous
  Country: US (occurrence: US)
  Receive Date: 20200404
  Receipt Date: 20200404
  Transmission Date: 20200713
  Serious: No
  Sender: FDA-Public Use
  Company Number: None

PATIENT
  Age: 72 Year
  Sex: Male
  Weight: 92.25 kg

DRUGS (2)
  1. MAXIMUM STRENGTH MUCUS RELIEF DM [Suspect]
     Active Substance: DEXTROMETHORPHAN HYDROBROMIDE\GUAIFENESIN
     Indication: PULMONARY CONGESTION
     Dosage: ?          QUANTITY:1 CAPSULE(S);?
     Route: 048
     Dates: start: 20200226, end: 20200404
  2. ALBUTEROL SULFATE INHALER [Concomitant]
     Active Substance: ALBUTEROL SULFATE

REACTIONS (2)
  - Product use complaint [None]
  - Diarrhoea [None]

NARRATIVE: CASE EVENT DATE: 20200404
